FAERS Safety Report 7825618-5 (Version None)
Quarter: 2011Q4

REPORT INFORMATION
  Report Type: 
  Country: None (occurrence: None)
  Receive Date: 20111017
  Receipt Date: 20111017
  Transmission Date: 20120403
  Serious: Yes (Hospitalization)
  Sender: FDA-Public Use
  Company Number: LEO-2011-00825

PATIENT
  Sex: Female

DRUGS (1)
  1. INNOHEP [Suspect]

REACTIONS (1)
  - INTENTIONAL OVERDOSE [None]
